FAERS Safety Report 16779637 (Version 1)
Quarter: 2019Q3

REPORT INFORMATION
  Report Type: Spontaneous
  Country: GB (occurrence: GB)
  Receive Date: 20190906
  Receipt Date: 20190906
  Transmission Date: 20191005
  Serious: Yes (Hospitalization)
  Sender: FDA-Public Use
  Company Number: GB-TEVA-2019-GB-1102680

PATIENT
  Age: 46 Year
  Sex: Male

DRUGS (6)
  1. ACETYLSALICYLIC ACID [Concomitant]
     Active Substance: ASPIRIN
     Dosage: 75 MG 1 DAYS
  2. RAMIPRIL. [Concomitant]
     Active Substance: RAMIPRIL
     Dosage: 2.5 MG 1 DAYS
  3. LORATADINE. [Concomitant]
     Active Substance: LORATADINE
     Dosage: 10 MG 1 DAYS
  4. LEVETIRACETAM. [Suspect]
     Active Substance: LEVETIRACETAM
     Indication: EPILEPSY
     Dosage: 500 MG 1 DAYS
     Route: 048
  5. PROMAZINE [Concomitant]
     Active Substance: PROMAZINE
     Dosage: 150 MG 1 DAYS
  6. ZOPICLONE [Concomitant]
     Active Substance: ZOPICLONE
     Dosage: AT NIGHT 7.5 MG 1 DAYS

REACTIONS (1)
  - Priapism [Recovered/Resolved]
